FAERS Safety Report 24026767 (Version 1)
Quarter: 2024Q2

REPORT INFORMATION
  Report Type: Spontaneous
  Country: CH (occurrence: CH)
  Receive Date: 20240628
  Receipt Date: 20240628
  Transmission Date: 20240716
  Serious: No
  Sender: FDA-Public Use
  Company Number: CH-ROCHE-3577269

PATIENT
  Age: 57 Year
  Sex: Female

DRUGS (1)
  1. PHESGO [Suspect]
     Active Substance: HYALURONIDASE-ZZXF\PERTUZUMAB\TRASTUZUMAB
     Indication: Product used for unknown indication
     Route: 065

REACTIONS (7)
  - Epistaxis [Unknown]
  - Dyspepsia [Unknown]
  - Stomatitis [Unknown]
  - Vulvovaginal dryness [Unknown]
  - Contusion [Unknown]
  - Chills [Unknown]
  - Feeling hot [Unknown]
